FAERS Safety Report 7522581-1 (Version None)
Quarter: 2011Q2

REPORT INFORMATION
  Report Type: 
  Country: None (occurrence: None)
  Receive Date: 20110525
  Receipt Date: 20110511
  Transmission Date: 20111010
  Serious: Yes (Other)
  Sender: FDA-Public Use
  Company Number: 2011S1000198

PATIENT
  Age: 63 Year
  Sex: Male
  Weight: 143.6 kg

DRUGS (7)
  1. FISH OIL [Concomitant]
  2. MULTI-VITAMIN [Concomitant]
  3. VITAMIN E [Concomitant]
  4. ASCORBIC ACID [Concomitant]
  5. LIVALO [Suspect]
     Indication: HYPERLIPIDAEMIA
     Dosage: 4 MG; 1X; PO
     Route: 048
     Dates: start: 20101208, end: 20110201
  6. LISINOPRIL AND HYDROCHLOROTHIAZIDE [Concomitant]
  7. SAW PALMETTO [Concomitant]

REACTIONS (1)
  - PROSTATE CANCER [None]
